FAERS Safety Report 7503460-2 (Version None)
Quarter: 2011Q2

REPORT INFORMATION
  Report Type: 
  Country: None (occurrence: None)
  Receive Date: 20110525
  Receipt Date: 20110520
  Transmission Date: 20111010
  Serious: Yes (Disabling, Other)
  Sender: FDA-Public Use
  Company Number: US-PFIZER INC-2009166747

PATIENT
  Sex: Female
  Weight: 64.399 kg

DRUGS (10)
  1. RANITIDINE [Concomitant]
     Dosage: UNK
  2. TRAZODONE [Concomitant]
     Indication: SLEEP DISORDER
     Dosage: 50 MG, 1X/DAY
  3. ADVAIR DISKUS 100/50 [Concomitant]
     Dosage: UNK
     Route: 048
  4. LEVOTHYROXINE [Concomitant]
     Indication: THYROID DISORDER
     Dosage: 125 UG, 1X/DAY
  5. CHANTIX [Suspect]
     Indication: SMOKING CESSATION THERAPY
     Dosage: 0.5 MG, 1X/DAY
     Route: 048
     Dates: start: 20080101
  6. CHANTIX [Suspect]
     Dosage: 0.5 MG, 1X/DAY
     Route: 048
     Dates: start: 20090101
  7. SEROQUEL [Suspect]
     Dosage: 400 MG, 1X/DAY, AT BED TIME
     Route: 048
  8. PROTONIX [Concomitant]
     Dosage: UNK
  9. CLONAZEPAM [Concomitant]
     Dosage: 1MG ONE TABLET IN THE MORNING AND TWO AT NIGHT
  10. SPIRIVA [Concomitant]
     Dosage: UNK
     Route: 055

REACTIONS (10)
  - RESTLESS LEGS SYNDROME [None]
  - DEPRESSION [None]
  - WITHDRAWAL SYNDROME [None]
  - WEIGHT DECREASED [None]
  - GLUCOSE TOLERANCE IMPAIRED [None]
  - CONFUSIONAL STATE [None]
  - BEDRIDDEN [None]
  - MUSCULOSKELETAL DISORDER [None]
  - FALL [None]
  - HYPERTENSION [None]
